FAERS Safety Report 10203022 (Version 1)
Quarter: 2014Q2

REPORT INFORMATION
  Report Type: Spontaneous
  Country: CH (occurrence: CH)
  Receive Date: 20140528
  Receipt Date: 20140528
  Transmission Date: 20141212
  Serious: Yes (Other)
  Sender: FDA-Public Use
  Company Number: CH-ABBVIE-14K-151-1239895-00

PATIENT
  Sex: Male

DRUGS (1)
  1. LUCRIN DEPOT [Suspect]
     Indication: ANTIANDROGEN THERAPY

REACTIONS (2)
  - Tibia fracture [Recovering/Resolving]
  - Blood calcium decreased [Unknown]
